FAERS Safety Report 17171590 (Version 1)
Quarter: 2019Q4

REPORT INFORMATION
  Report Type: Spontaneous
  Country: JP (occurrence: JP)
  Receive Date: 20191218
  Receipt Date: 20191218
  Transmission Date: 20200122
  Serious: Yes (Other)
  Sender: FDA-Public Use
  Company Number: JP-JNJFOC-20191221263

PATIENT
  Age: 8 Decade
  Sex: Female

DRUGS (2)
  1. RIVAROXABAN [Suspect]
     Active Substance: RIVAROXABAN
     Indication: PRODUCT USED FOR UNKNOWN INDICATION
     Route: 048
  2. RIVAROXABAN [Suspect]
     Active Substance: RIVAROXABAN
     Dosage: 0.5T
     Route: 048

REACTIONS (4)
  - Diverticulitis [Unknown]
  - Haemorrhagic diathesis [Unknown]
  - Off label use [Unknown]
  - Diverticulum intestinal haemorrhagic [Unknown]
